FAERS Safety Report 5923545-1 (Version None)
Quarter: 2008Q4

REPORT INFORMATION
  Report Type: 
  Country: None (occurrence: None)
  Receive Date: 20081020
  Receipt Date: 20081015
  Transmission Date: 20090506
  Serious: Yes (Death)
  Sender: FDA-Public Use
  Company Number: US-NOVOPROD-280368

PATIENT
  Age: 85 Year
  Sex: Female

DRUGS (1)
  1. NOVOSEVEN RT [Suspect]
     Indication: ACQUIRED HAEMOPHILIA
     Route: 042
     Dates: start: 20080808, end: 20080820

REACTIONS (1)
  - SUBDURAL HAEMATOMA [None]
